FAERS Safety Report 16566901 (Version 1)
Quarter: 2019Q3

REPORT INFORMATION
  Report Type: Spontaneous
  Country: US (occurrence: US)
  Receive Date: 20190712
  Receipt Date: 20190712
  Transmission Date: 20191004
  Serious: Yes (Death, Hospitalization)
  Sender: FDA-Public Use
  Company Number: PHHY2019US160028

PATIENT
  Age: 30 Year
  Sex: Male

DRUGS (2)
  1. METHYLPREDNISOLONE. [Suspect]
     Active Substance: METHYLPREDNISOLONE
     Dosage: 1 G, UNK
     Route: 042
  2. METHYLPREDNISOLONE. [Suspect]
     Active Substance: METHYLPREDNISOLONE
     Indication: PULMONARY TOXICITY
     Dosage: 125 MG, BID
     Route: 042

REACTIONS (5)
  - Pneumothorax [Fatal]
  - Acute respiratory failure [Fatal]
  - Pulmonary fibrosis [Fatal]
  - Pneumonitis [Fatal]
  - Product use in unapproved indication [Unknown]
